FAERS Safety Report 21269324 (Version 1)
Quarter: 2022Q3

REPORT INFORMATION
  Report Type: Spontaneous
  Country: US (occurrence: None)
  Receive Date: 20220829
  Receipt Date: 20220829
  Transmission Date: 20221027
  Serious: Yes (Other)
  Sender: FDA-Public Use
  Company Number: None

PATIENT
  Sex: Female

DRUGS (3)
  1. ENBREL [Suspect]
     Active Substance: ETANERCEPT
     Indication: Rheumatoid arthritis
     Dosage: INJECT 50 MG UNDER THE SKIN ONCE A WEEK
     Route: 058
     Dates: start: 20211112
  2. ENBREL [Suspect]
     Active Substance: ETANERCEPT
     Dosage: FREQUENCY : WEEKLY;?
     Route: 011
  3. SENOKOT-S [Concomitant]
     Active Substance: DOCUSATE SODIUM\SENNOSIDES

REACTIONS (8)
  - Acute myocardial infarction [None]
  - Myocardial infarction [None]
  - Loss of personal independence in daily activities [None]
  - Fatigue [None]
  - Headache [None]
  - Arthralgia [None]
  - Rash [None]
  - Skin irritation [None]
